FAERS Safety Report 9397117 (Version 1)
Quarter: 2013Q3

REPORT INFORMATION
  Report Type: Spontaneous
  Country: US (occurrence: None)
  Receive Date: 20130710
  Receipt Date: 20130710
  Transmission Date: 20140515
  Serious: Yes (Other)
  Sender: FDA-Public Use
  Company Number: None

PATIENT
  Age: 51 Year
  Sex: Female
  Weight: 108.86 kg

DRUGS (1)
  1. BANANA BOAT SPORT PERFORMANCE ACTIVE DRY PROTECT SPF 85 [Suspect]
     Dosage: GENEROUSLY APPLY
     Route: 008
     Dates: start: 20130706, end: 20130707

REACTIONS (5)
  - Sunburn [None]
  - Expired drug administered [None]
  - Product label issue [None]
  - Erythema [None]
  - Discomfort [None]
